FAERS Safety Report 5508476-3 (Version None)
Quarter: 2007Q4

REPORT INFORMATION
  Report Type: 
  Country: None (occurrence: None)
  Receive Date: 20071031
  Receipt Date: 20070830
  Transmission Date: 20080405
  Serious: No
  Sender: FDA-Public Use
  Company Number: 200712676BWH

PATIENT
  Age: 46 Year
  Sex: Female

DRUGS (2)
  1. NEXAVAR [Suspect]
     Indication: HEPATIC NEOPLASM MALIGNANT
     Dosage: 200 MG, BID, ORAL; 400 MG, BID, ORAL
     Route: 048
     Dates: start: 20070801
  2. NEXAVAR [Suspect]
     Indication: HEPATIC NEOPLASM MALIGNANT
     Dosage: 200 MG, BID, ORAL; 400 MG, BID, ORAL
     Route: 048
     Dates: start: 20070808

REACTIONS (4)
  - DIARRHOEA [None]
  - HYPERTENSION [None]
  - PAIN OF SKIN [None]
  - SKIN DISORDER [None]
